FAERS Safety Report 10673939 (Version 1)
Quarter: 2014Q4

REPORT INFORMATION
  Report Type: Spontaneous
  Country: GB (occurrence: None)
  Receive Date: 20141222
  Receipt Date: 20141222
  Transmission Date: 20150529
  Serious: Yes (Life-Threatening, Hospitalization, Disabling, Other)
  Sender: FDA-Public Use
  Company Number: FK201406330

PATIENT
  Age: 80 Year

DRUGS (8)
  1. LOSARTAN(LOSARTAN) [Concomitant]
     Active Substance: LOSARTAN
  2. ADCAL D3 (LEKOVITCA) [Concomitant]
  3. FOLIC ACID (FOLIC ACID) [Concomitant]
     Active Substance: FOLIC ACID
  4. LACRI LUB (OCULAR LUBRICANT/017688801/) [Concomitant]
  5. METHOTREXATE(MYLAN) [Suspect]
     Active Substance: METHOTREXATE
     Indication: RHEUMATOID ARTHRITIS
     Route: 048
     Dates: start: 19960920, end: 20140902
  6. ALENDRONATE(ALENDRONATE SODIUM) [Concomitant]
     Active Substance: ALENDRONATE SODIUM
  7. WARFARIN(WARFARIN) [Concomitant]
  8. RITUXIMAB [Suspect]
     Active Substance: RITUXIMAB
     Indication: RHEUMATOID ARTHRITIS
     Route: 042
     Dates: end: 20140131

REACTIONS (2)
  - Jaundice cholestatic [None]
  - Pancreatic carcinoma [None]

NARRATIVE: CASE EVENT DATE: 20141009
